FAERS Safety Report 10431937 (Version 1)
Quarter: 2014Q3

REPORT INFORMATION
  Report Type: Spontaneous
  Country: CH (occurrence: CH)
  Receive Date: 20140905
  Receipt Date: 20140905
  Transmission Date: 20150326
  Serious: Yes (Other)
  Sender: FDA-Public Use
  Company Number: CH-ROCHE-1455990

PATIENT
  Age: 39 Year
  Sex: Male

DRUGS (16)
  1. MERONEM [Concomitant]
     Active Substance: MEROPENEM
     Indication: CNS VENTRICULITIS
     Route: 040
     Dates: start: 20140705, end: 20140707
  2. ESIDREX [Concomitant]
     Active Substance: HYDROCHLOROTHIAZIDE
     Route: 065
     Dates: start: 20140708
  3. ENALAPRIL [Concomitant]
     Active Substance: ENALAPRIL
     Route: 065
     Dates: start: 20140623
  4. ATENOLOL. [Concomitant]
     Active Substance: ATENOLOL
     Route: 065
     Dates: start: 20140702, end: 20140705
  5. LAXOBERON [Concomitant]
     Active Substance: SODIUM PICOSULFATE
     Route: 065
     Dates: start: 20140707
  6. LONITEN [Concomitant]
     Active Substance: MINOXIDIL
     Route: 065
     Dates: start: 20140703, end: 20140706
  7. ALDACTONE [Concomitant]
     Active Substance: SPIRONOLACTONE
     Route: 065
     Dates: start: 20140704
  8. PHYSIOTENS [Concomitant]
     Active Substance: MOXONIDINE
     Route: 065
     Dates: start: 20140625, end: 20140706
  9. MERONEM [Concomitant]
     Active Substance: MEROPENEM
     Route: 040
     Dates: start: 20140708
  10. HEPARIN [Concomitant]
     Active Substance: HEPARIN SODIUM
  11. SERESTA [Concomitant]
     Active Substance: OXAZEPAM
     Route: 065
     Dates: start: 20140702, end: 20140706
  12. NOVALGIN (SWITZERLAND) [Concomitant]
     Route: 065
     Dates: start: 20140703, end: 20140705
  13. ROCEPHIN [Suspect]
     Active Substance: CEFTRIAXONE SODIUM
     Indication: CNS VENTRICULITIS
     Route: 040
     Dates: start: 20140707, end: 20140708
  14. ERYTHROMYCIN. [Suspect]
     Active Substance: ERYTHROMYCIN
     Indication: CNS VENTRICULITIS
     Route: 040
     Dates: start: 20140707, end: 20140708
  15. AMOXICILLIN AND CLAVULANATE POTASSIUM [Suspect]
     Active Substance: AMOXICILLIN\CLAVULANATE POTASSIUM
     Indication: BRONCHOPNEUMONIA
     Route: 040
     Dates: start: 20140624, end: 20140702
  16. VANCOMYCINE [Concomitant]
     Active Substance: VANCOMYCIN
     Route: 065
     Dates: start: 20140707, end: 20140708

REACTIONS (1)
  - Hepatocellular injury [Recovering/Resolving]

NARRATIVE: CASE EVENT DATE: 20140708
